FAERS Safety Report 9918624 (Version 3)
Quarter: 2014Q1

REPORT INFORMATION
  Report Type: Report from Study
  Country: EG (occurrence: EG)
  Receive Date: 20140224
  Receipt Date: 20140225
  Transmission Date: 20141002
  Serious: Yes (Hospitalization, Other)
  Sender: FDA-Public Use
  Company Number: EG-ROCHE-1341055

PATIENT
  Age: 50 Year
  Sex: Female
  Weight: 76 kg

DRUGS (5)
  1. PEGASYS [Suspect]
     Indication: HEPATITIS C
     Route: 058
     Dates: start: 20131221
  2. COPEGUS [Suspect]
     Indication: HEPATITIS C
     Route: 048
     Dates: start: 20131221
  3. AMANTADINE HCL [Concomitant]
     Dosage: 1 TAB AT MORNING AND ONE AT EVENING
     Route: 048
     Dates: start: 20131221
  4. ACETYLCYSTEINE [Concomitant]
     Dosage: 3 SACHETS DAILY
     Route: 048
     Dates: start: 20131221
  5. NEUPOGEN [Concomitant]
     Indication: NEUTROPENIA
     Route: 065

REACTIONS (9)
  - Syncope [Recovering/Resolving]
  - White blood cell count decreased [Not Recovered/Not Resolved]
  - Hypotension [Recovering/Resolving]
  - Headache [Not Recovered/Not Resolved]
  - Heart rate increased [Not Recovered/Not Resolved]
  - Decreased appetite [Not Recovered/Not Resolved]
  - Dizziness [Not Recovered/Not Resolved]
  - Hepatic enzyme increased [Unknown]
  - Pyrexia [Not Recovered/Not Resolved]
